FAERS Safety Report 8077525-3 (Version None)
Quarter: 2012Q1

REPORT INFORMATION
  Report Type: 
  Country: None (occurrence: None)
  Receive Date: 20120126
  Receipt Date: 20120126
  Transmission Date: 20120608
  Serious: Yes (Death)
  Sender: FDA-Public Use
  Company Number: None

PATIENT
  Age: 77 Year
  Sex: Male

DRUGS (8)
  1. OMEPRAZOLE [Concomitant]
  2. REVLIMID [Suspect]
     Indication: MULTIPLE MYELOMA
     Dosage: 10 MG DAILY X21D/28D ORALLY
     Route: 048
     Dates: start: 20110201, end: 20110601
  3. ONDANSETRON [Concomitant]
  4. DOCUSATE [Concomitant]
  5. SENNA-MINT WAF [Concomitant]
  6. HYDROXYUREA [Concomitant]
  7. WARFARIN SODIUM [Concomitant]
  8. PHYTONADIONE [Concomitant]

REACTIONS (8)
  - VOMITING [None]
  - FAECAL INCONTINENCE [None]
  - URINARY INCONTINENCE [None]
  - APHAGIA [None]
  - NEUROPATHY PERIPHERAL [None]
  - ASTHENIA [None]
  - BLOOD IMMUNOGLOBULIN G DECREASED [None]
  - AGITATION [None]
